FAERS Safety Report 10793860 (Version 1)
Quarter: 2015Q1

REPORT INFORMATION
  Report Type: Spontaneous
  Country: TR (occurrence: TR)
  Receive Date: 20150213
  Receipt Date: 20150213
  Transmission Date: 20150721
  Serious: Yes (Hospitalization, Other)
  Sender: FDA-Public Use
  Company Number: TR-BAXTER-2015BAX006994

PATIENT
  Age: 43 Year
  Sex: Female

DRUGS (4)
  1. THIOPENTAL [Suspect]
     Active Substance: THIOPENTAL
     Indication: INDUCTION OF ANAESTHESIA
     Route: 065
  2. TRACRIUM [Suspect]
     Active Substance: ATRACURIUM BESYLATE
     Indication: INDUCTION OF ANAESTHESIA
     Route: 065
  3. ALFENTANIL [Suspect]
     Active Substance: ALFENTANIL
     Indication: INDUCTION OF ANAESTHESIA
     Route: 065
  4. SEVOFLURANE. [Suspect]
     Active Substance: SEVOFLURANE
     Indication: INDUCTION OF ANAESTHESIA
     Route: 055

REACTIONS (2)
  - Deafness neurosensory [Recovering/Resolving]
  - Post procedural complication [Recovering/Resolving]
